FAERS Safety Report 19026021 (Version 1)
Quarter: 2021Q1

REPORT INFORMATION
  Report Type: Spontaneous
  Country: US (occurrence: US)
  Receive Date: 20210316
  Receipt Date: 20210316
  Transmission Date: 20210420
  Serious: Yes (Hospitalization)
  Sender: FDA-Public Use
  Company Number: None

PATIENT
  Age: 69 Year
  Sex: Male
  Weight: 56 kg

DRUGS (1)
  1. CEFDINIR. [Suspect]
     Active Substance: CEFDINIR
     Indication: ORCHITIS
     Route: 048
     Dates: start: 20190601, end: 20190712

REACTIONS (12)
  - Liver function test increased [None]
  - Chromaturia [None]
  - Urinary tract infection [None]
  - Nausea [None]
  - Vomiting [None]
  - Faeces discoloured [None]
  - Urinary retention [None]
  - Jaundice [None]
  - Enterobacter infection [None]
  - Scrotal cellulitis [None]
  - Colitis [None]
  - Culture urine positive [None]

NARRATIVE: CASE EVENT DATE: 20190705
